FAERS Safety Report 26214180 (Version 1)
Quarter: 2025Q4

REPORT INFORMATION
  Report Type: Spontaneous
  Country: US (occurrence: US)
  Receive Date: 20251230
  Receipt Date: 20251230
  Transmission Date: 20260117
  Serious: Yes (Death, Other)
  Sender: AMGEN
  Company Number: US-AMGEN-USASP2025254898

PATIENT

DRUGS (1)
  1. RITUXIMAB [Suspect]
     Active Substance: RITUXIMAB
     Indication: Thrombotic thrombocytopenic purpura
     Dosage: UNK
     Route: 065

REACTIONS (9)
  - Death [Fatal]
  - Atrial fibrillation [Unknown]
  - Condition aggravated [Unknown]
  - Embolism venous [Unknown]
  - Pruritus [Unknown]
  - Drug effective for unapproved indication [Unknown]
  - Off label use [Unknown]
  - Haemorrhage [Unknown]
  - Fungal infection [Unknown]
